FAERS Safety Report 17739466 (Version 1)
Quarter: 2020Q2

REPORT INFORMATION
  Report Type: Spontaneous
  Country: US (occurrence: US)
  Receive Date: 20200501
  Receipt Date: 20200501
  Transmission Date: 20200714
  Serious: Yes (Death)
  Sender: FDA-Public Use
  Company Number: None

PATIENT
  Age: 70 Year
  Sex: Male
  Weight: 94.5 kg

DRUGS (12)
  1. BRILINTA [Concomitant]
     Active Substance: TICAGRELOR
  2. NEXIUM [Concomitant]
     Active Substance: ESOMEPRAZOLE MAGNESIUM
  3. AMLODIPINE [Concomitant]
     Active Substance: AMLODIPINE BESYLATE
  4. LEVOTHYROXINE. [Concomitant]
     Active Substance: LEVOTHYROXINE
  5. NEUPOGEN [Suspect]
     Active Substance: FILGRASTIM
     Indication: PLASMA CELL MYELOMA
     Route: 058
     Dates: start: 20170802, end: 20170811
  6. DEXAMETHASONE. [Concomitant]
     Active Substance: DEXAMETHASONE
  7. TAMSULOSIN [Concomitant]
     Active Substance: TAMSULOSIN
  8. ASPIRIN. [Concomitant]
     Active Substance: ASPIRIN
  9. LANTUS SOLOSTAR [Concomitant]
     Active Substance: INSULIN GLARGINE
  10. POMALYST [Concomitant]
     Active Substance: POMALIDOMIDE
  11. FINASTERIDE. [Concomitant]
     Active Substance: FINASTERIDE
  12. NOVOLOG [Concomitant]
     Active Substance: INSULIN ASPART

REACTIONS (1)
  - Death [None]
